FAERS Safety Report 4630466-3 (Version None)
Quarter: 2005Q2

REPORT INFORMATION
  Report Type: 
  Country: None (occurrence: None)
  Receive Date: 20050406
  Receipt Date: 20050323
  Transmission Date: 20051028
  Serious: Yes (Other)
  Sender: FDA-Public Use
  Company Number: USA020718780

PATIENT
  Age: 67 Year
  Sex: Female
  Weight: 62 kg

DRUGS (2)
  1. HUMULIN N [Suspect]
     Indication: DIABETES MELLITUS
     Dates: start: 19990101, end: 20030101
  2. HUMALOG [Suspect]
     Indication: DIABETES MELLITUS
     Dates: start: 20030101

REACTIONS (15)
  - CATARACT [None]
  - DRUG INEFFECTIVE [None]
  - EYE INFECTION [None]
  - EYE IRRITATION [None]
  - EYE PAIN [None]
  - EYE PRURITUS [None]
  - GLAUCOMA [None]
  - INJECTION SITE HAEMORRHAGE [None]
  - MEDICAL DEVICE COMPLICATION [None]
  - PHARMACEUTICAL PRODUCT COMPLAINT [None]
  - POST PROCEDURAL COMPLICATION [None]
  - POST PROCEDURAL DISCHARGE [None]
  - RETINOPATHY [None]
  - SCAR [None]
  - WEIGHT INCREASED [None]
